FAERS Safety Report 5586544-8 (Version None)
Quarter: 2008Q1

REPORT INFORMATION
  Report Type: 
  Country: None (occurrence: None)
  Receive Date: 20080110
  Receipt Date: 20080102
  Transmission Date: 20080703
  Serious: Yes (Other)
  Sender: FDA-Public Use
  Company Number: US-AVENTIS-200810143GDDC

PATIENT
  Age: 5 Month
  Sex: Female

DRUGS (4)
  1. ARAVA [Suspect]
     Route: 065
     Dates: start: 20060828, end: 20060930
  2. PRENATAL VITAMINS                  /01549301/ [Suspect]
     Dosage: DOSE: 1 PILL
     Route: 065
     Dates: start: 20061028, end: 20070604
  3. IRON [Suspect]
     Dosage: DOSE: 2 PILLS
     Route: 065
     Dates: start: 20060828
  4. FLU VACCINE [Suspect]
     Route: 065
     Dates: start: 20061001, end: 20061031

REACTIONS (2)
  - CONVULSION [None]
  - DRUG EXPOSURE DURING PREGNANCY [None]
